FAERS Safety Report 4579573-4 (Version None)
Quarter: 2005Q1

REPORT INFORMATION
  Report Type: 
  Country: None (occurrence: None)
  Receive Date: 20050214
  Receipt Date: 20050201
  Transmission Date: 20050727
  Serious: Yes (Hospitalization)
  Sender: FDA-Public Use
  Company Number: US-JNJFOC-20040403744

PATIENT
  Sex: Male
  Weight: 81.65 kg

DRUGS (26)
  1. REMICADE [Suspect]
     Route: 042
  2. REMICADE [Suspect]
     Route: 042
  3. REMICADE [Suspect]
     Indication: RHEUMATOID ARTHRITIS
     Route: 042
  4. METHOTREXATE [Concomitant]
     Indication: RHEUMATOID ARTHRITIS
     Route: 049
  5. COZAAR [Concomitant]
     Indication: HYPERTENSION
     Route: 049
  6. LIPITOR [Concomitant]
     Route: 049
  7. METOPROLOL [Concomitant]
     Indication: HYPERTENSION
     Route: 049
  8. AMIODARONE HCL [Concomitant]
     Route: 049
  9. COUMADIN [Concomitant]
     Dosage: 2 MG 5X/WK,  1 MG 2X/WK
     Route: 049
  10. PREDNISONE [Concomitant]
     Indication: RHEUMATOID ARTHRITIS
     Route: 049
  11. CALCIUM GLUCONATE [Concomitant]
  12. VITAMIN E [Concomitant]
  13. VITAMIN B COMPLEX CAP [Concomitant]
  14. VITAMIN B COMPLEX CAP [Concomitant]
  15. VITAMIN B COMPLEX CAP [Concomitant]
  16. VITAMIN B COMPLEX CAP [Concomitant]
  17. VITAMIN B COMPLEX CAP [Concomitant]
  18. ASPIRIN [Concomitant]
  19. MULTI-VITAMINS [Concomitant]
  20. MULTI-VITAMINS [Concomitant]
  21. MULTI-VITAMINS [Concomitant]
  22. MULTI-VITAMINS [Concomitant]
  23. MULTI-VITAMINS [Concomitant]
  24. MULTI-VITAMINS [Concomitant]
  25. MULTI-VITAMINS [Concomitant]
  26. MULTI-VITAMINS [Concomitant]

REACTIONS (8)
  - ASTHENIA [None]
  - COLD SWEAT [None]
  - DIZZINESS [None]
  - HEADACHE [None]
  - HYPOTENSION [None]
  - NIGHT SWEATS [None]
  - PAIN [None]
  - PYREXIA [None]
